FAERS Safety Report 6837128-2 (Version None)
Quarter: 2010Q3

REPORT INFORMATION
  Report Type: 
  Country: None (occurrence: None)
  Receive Date: 20100713
  Receipt Date: 20070507
  Transmission Date: 20110219
  Serious: No
  Sender: FDA-Public Use
  Company Number: US-PFIZER INC-2007037833

PATIENT
  Age: 67 Year
  Sex: Male

DRUGS (4)
  1. CHANTIX [Suspect]
     Indication: SMOKING CESSATION THERAPY
     Dates: start: 20070201
  2. CHOLESTEROL [Concomitant]
  3. ACETYLSALICYLIC ACID [Concomitant]
  4. VITAMINS [Concomitant]

REACTIONS (3)
  - FATIGUE [None]
  - MUSCULOSKELETAL DISCOMFORT [None]
  - WEIGHT INCREASED [None]
